FAERS Safety Report 13291039 (Version 3)
Quarter: 2017Q1

REPORT INFORMATION
  Report Type: Spontaneous
  Country: US (occurrence: US)
  Receive Date: 20170302
  Receipt Date: 20170316
  Transmission Date: 20170428
  Serious: Yes (Other)
  Sender: FDA-Public Use
  Company Number: US-PFIZER INC-2017087846

PATIENT
  Age: 42 Year
  Sex: Male
  Weight: 86 kg

DRUGS (1)
  1. EFFEXOR XR [Suspect]
     Active Substance: VENLAFAXINE HYDROCHLORIDE
     Indication: ANXIETY
     Dosage: 225 MG, 1X/DAY
     Route: 048
     Dates: start: 201609

REACTIONS (8)
  - Intentional product misuse [Unknown]
  - Feeling abnormal [Not Recovered/Not Resolved]
  - Drug ineffective [Unknown]
  - Paraesthesia [Unknown]
  - Product solubility abnormal [Unknown]
  - Seizure [Unknown]
  - Drug dose omission [Unknown]
  - Tooth loss [Unknown]

NARRATIVE: CASE EVENT DATE: 2016
